FAERS Safety Report 6905120-5 (Version None)
Quarter: 2010Q3

REPORT INFORMATION
  Report Type: 
  Country: None (occurrence: None)
  Receive Date: 20100804
  Receipt Date: 20090930
  Transmission Date: 20110219
  Serious: No
  Sender: FDA-Public Use
  Company Number: US-PFIZER INC-2009247438

PATIENT
  Sex: Female
  Weight: 68 kg

DRUGS (4)
  1. LYRICA [Suspect]
     Indication: HYPOAESTHESIA
     Dosage: 200 MG, 2X/DAY
     Dates: end: 20090601
  2. FLEXERIL [Concomitant]
     Dosage: UNK
  3. LORTAB [Concomitant]
     Dosage: UNK
  4. MORPHINE SULFATE [Concomitant]
     Dosage: UNK

REACTIONS (1)
  - HEAD INJURY [None]
